FAERS Safety Report 9868253 (Version 1)
Quarter: 2014Q1

REPORT INFORMATION
  Report Type: Spontaneous
  Country: US (occurrence: US)
  Receive Date: 20140204
  Receipt Date: 20140204
  Transmission Date: 20141002
  Serious: Yes (Life-Threatening)
  Sender: FDA-Public Use
  Company Number: 2014SP000291

PATIENT
  Sex: 0

DRUGS (2)
  1. LATUDA [Suspect]
     Route: 048
     Dates: start: 20140121
  2. LATUDA [Suspect]
     Route: 048

REACTIONS (1)
  - Hypersensitivity [Unknown]
